FAERS Safety Report 13036823 (Version 1)
Quarter: 2016Q4

REPORT INFORMATION
  Report Type: Spontaneous
  Country: FR (occurrence: FR)
  Receive Date: 20161216
  Receipt Date: 20161216
  Transmission Date: 20170207
  Serious: Yes (Hospitalization, Other)
  Sender: FDA-Public Use
  Company Number: FR-BRISTOL-MYERS SQUIBB COMPANY-BMS-2016-105694

PATIENT
  Sex: Female

DRUGS (11)
  1. RILMENIDINE [Concomitant]
     Active Substance: RILMENIDINE
     Indication: HYPERTENSION
     Dosage: 1 MG, QD
     Route: 065
  2. PROPRANOLOL [Concomitant]
     Active Substance: PROPRANOLOL\PROPRANOLOL HYDROCHLORIDE
     Indication: HYPERTENSION
     Dosage: 40 MG, QD
     Route: 065
  3. ASPEGIC [Concomitant]
     Active Substance: ASPIRIN DL-LYSINE
     Indication: PAIN
     Dosage: 100 MG, QD
     Route: 065
  4. ESOMEPRAZOLE                       /01479302/ [Concomitant]
     Active Substance: ESOMEPRAZOLE
     Indication: GASTROOESOPHAGEAL REFLUX DISEASE
     Route: 065
  5. BROMAZEPAM [Concomitant]
     Active Substance: BROMAZEPAM
     Indication: ANXIETY
     Dosage: 3 MG, QD
     Route: 065
  6. DOLIPRANE [Concomitant]
     Active Substance: ACETAMINOPHEN
     Indication: PAIN
     Route: 065
  7. SPASFON LYOC [Concomitant]
     Active Substance: PHLOROGLUCINOL
     Indication: PAIN
     Route: 065
  8. FORLAX [Concomitant]
     Active Substance: POLYETHYLENE GLYCOL 4000
     Indication: CONSTIPATION
     Route: 065
  9. YERVOY [Suspect]
     Active Substance: IPILIMUMAB
     Indication: MALIGNANT MELANOMA
     Dosage: UNK
     Route: 065
     Dates: start: 20141218, end: 20150219
  10. CO-APROVEL [Concomitant]
     Active Substance: HYDROCHLOROTHIAZIDE\IRBESARTAN
     Indication: HYPERTENSION
     Route: 065
  11. PRAVASTATIN SODIUM. [Concomitant]
     Active Substance: PRAVASTATIN SODIUM
     Indication: HYPERCHOLESTEROLAEMIA
     Dosage: 20 MG, QD
     Route: 065

REACTIONS (2)
  - Colitis [Recovered/Resolved]
  - Lung disorder [Unknown]
